FAERS Safety Report 12976728 (Version 1)
Quarter: 2016Q4

REPORT INFORMATION
  Report Type: Spontaneous
  Country: DE (occurrence: DE)
  Receive Date: 20161128
  Receipt Date: 20161128
  Transmission Date: 20170207
  Serious: Yes (Other)
  Sender: FDA-Public Use
  Company Number: PHHY2016DE159079

PATIENT
  Age: 42 Year
  Sex: Female

DRUGS (1)
  1. COSENTYX [Suspect]
     Active Substance: SECUKINUMAB
     Indication: PRODUCT USED FOR UNKNOWN INDICATION
     Dosage: 300 MG,PER APPLICATION
     Route: 065
     Dates: start: 20160706

REACTIONS (4)
  - Headache [Recovered/Resolved with Sequelae]
  - Ocular hyperaemia [Recovered/Resolved with Sequelae]
  - Conjunctivitis [Recovered/Resolved with Sequelae]
  - Ophthalmic herpes zoster [Recovered/Resolved with Sequelae]

NARRATIVE: CASE EVENT DATE: 20160805
